FAERS Safety Report 16664441 (Version 2)
Quarter: 2019Q3

REPORT INFORMATION
  Report Type: Report from Study
  Country: US (occurrence: US)
  Receive Date: 20190802
  Receipt Date: 20190820
  Transmission Date: 20191004
  Serious: Yes (Death, Hospitalization, Other)
  Sender: FDA-Public Use
  Company Number: US-ALLERGAN-1931465US

PATIENT
  Sex: Male

DRUGS (1)
  1. LIPASE 10,000USP;AMYLASE 9,000USP;PROTEASE 500USP CAP [Suspect]
     Active Substance: AMYLASE\LIPASE\PROTEASE
     Indication: PRODUCT USED FOR UNKNOWN INDICATION
     Dosage: 10,000/32,000, BID
     Route: 048
     Dates: start: 20190531, end: 201907

REACTIONS (4)
  - Pulmonary embolism [Unknown]
  - Respiratory failure [Unknown]
  - Pancreatic carcinoma recurrent [Unknown]
  - Death [Fatal]
